FAERS Safety Report 8093238-6 (Version None)
Quarter: 2012Q1

REPORT INFORMATION
  Report Type: 
  Country: None (occurrence: None)
  Receive Date: 20120128
  Receipt Date: 20111007
  Transmission Date: 20120608
  Serious: No
  Sender: FDA-Public Use
  Company Number: US-ABBOTT-11P-163-0722627-00

PATIENT
  Age: 33 Year
  Sex: Female

DRUGS (5)
  1. HUMIRA [Suspect]
  2. HUMIRA [Suspect]
     Indication: PSORIASIS
     Dates: start: 20110401, end: 20110801
  3. CLARITIN [Concomitant]
     Indication: SEASONAL ALLERGY
  4. HUMIRA [Suspect]
     Indication: PSORIATIC ARTHROPATHY
     Dates: start: 20110101
  5. SINGULAIR [Concomitant]
     Indication: SEASONAL ALLERGY

REACTIONS (3)
  - ALOPECIA [None]
  - PSORIASIS [None]
  - DRUG INEFFECTIVE [None]
